FAERS Safety Report 10705345 (Version 2)
Quarter: 2015Q1

REPORT INFORMATION
  Report Type: Spontaneous
  Country: US (occurrence: US)
  Receive Date: 20150112
  Receipt Date: 20150112
  Transmission Date: 20150721
  Serious: Yes (Other)
  Sender: FDA-Public Use
  Company Number: US-UNITED THERAPEUTICS-UNT-2014-010571

PATIENT
  Age: 61 Year
  Sex: Male
  Weight: 73.96 kg

DRUGS (3)
  1. ADCIRCA [Concomitant]
     Active Substance: TADALAFIL
     Indication: PRODUCT USED FOR UNKNOWN INDICATION
  2. DIURETICS [Concomitant]
     Active Substance: UNSPECIFIED INGREDIENT
     Indication: PRODUCT USED FOR UNKNOWN INDICATION
  3. TYVASO [Suspect]
     Active Substance: TREPROSTINIL
     Indication: COR PULMONALE CHRONIC
     Dosage: 54 ?G, QID
     Dates: start: 20130321

REACTIONS (5)
  - Epistaxis [Not Recovered/Not Resolved]
  - Therapy cessation [Unknown]
  - Fall [Not Recovered/Not Resolved]
  - Rib fracture [Unknown]
  - Dyspnoea [Unknown]

NARRATIVE: CASE EVENT DATE: 201411
